FAERS Safety Report 7606866-6 (Version None)
Quarter: 2011Q3

REPORT INFORMATION
  Report Type: 
  Country: None (occurrence: None)
  Receive Date: 20110713
  Receipt Date: 20110711
  Transmission Date: 20111222
  Serious: Yes (Hospitalization)
  Sender: FDA-Public Use
  Company Number: FR-GLAXOSMITHKLINE-B0695571A

PATIENT
  Sex: Female

DRUGS (1)
  1. AUGMENTIN '125' [Suspect]
     Indication: BRONCHITIS
     Dosage: 1G THREE TIMES PER DAY
     Route: 048
     Dates: start: 20101217, end: 20101225

REACTIONS (1)
  - FEBRILE NEUTROPENIA [None]
